FAERS Safety Report 23118633 (Version 2)
Quarter: 2023Q4

REPORT INFORMATION
  Report Type: Report from Study
  Country: CA (occurrence: CA)
  Receive Date: 20231028
  Receipt Date: 20231214
  Transmission Date: 20240110
  Serious: Yes (Other)
  Sender: FDA-Public Use
  Company Number: CA-002147023-NVSC2020CA219013

PATIENT
  Age: 63 Year
  Sex: Female

DRUGS (2)
  1. ERELZI [Suspect]
     Active Substance: ETANERCEPT-SZZS
     Indication: Rheumatoid arthritis
     Dosage: 50 MG, QW; FORMULATION: PREFILLED PEN
     Route: 058
     Dates: start: 20200731
  2. NAPROXEN [Concomitant]
     Active Substance: NAPROXEN
     Indication: Product used for unknown indication
     Dosage: UNK, BID (TWICE DAILY)
     Route: 048
     Dates: start: 2017

REACTIONS (18)
  - Angina pectoris [Recovered/Resolved]
  - Fatigue [Recovered/Resolved]
  - General physical health deterioration [Unknown]
  - Loss of personal independence in daily activities [Unknown]
  - Mobility decreased [Unknown]
  - Grip strength decreased [Unknown]
  - Pain [Unknown]
  - Urticaria [Unknown]
  - Erythema [Unknown]
  - Headache [Recovered/Resolved]
  - Injection site mass [Recovered/Resolved]
  - Injection site oedema [Recovered/Resolved]
  - Injection site erythema [Recovered/Resolved]
  - Injection site warmth [Recovered/Resolved]
  - Injection site mass [Recovered/Resolved]
  - Injection site erythema [Recovered/Resolved]
  - Injection site pain [Recovered/Resolved]
  - Injection site warmth [Recovered/Resolved]

NARRATIVE: CASE EVENT DATE: 20200731
